FAERS Safety Report 14532967 (Version 1)
Quarter: 2018Q1

REPORT INFORMATION
  Report Type: Spontaneous
  Country: US (occurrence: US)
  Receive Date: 20180215
  Receipt Date: 20180215
  Transmission Date: 20180509
  Serious: Yes (Other)
  Sender: FDA-Public Use
  Company Number: US-009507513-1802USA002917

PATIENT
  Age: 54 Year
  Sex: Female
  Weight: 66.67 kg

DRUGS (2)
  1. LEVOTHYROXINE SODIUM. [Concomitant]
     Active Substance: LEVOTHYROXINE SODIUM
     Dosage: UNK
  2. NEXPLANON [Suspect]
     Active Substance: ETONOGESTREL
     Indication: MENSTRUAL CYCLE MANAGEMENT
     Dosage: 1 DF, EVERY 3 YEARS IN RIGHT ARM
     Route: 059

REACTIONS (10)
  - Malaise [Unknown]
  - Headache [Unknown]
  - Unintended pregnancy [Unknown]
  - Abdominal tenderness [Unknown]
  - Nausea [Unknown]
  - Menometrorrhagia [Unknown]
  - Pregnancy with implant contraceptive [Unknown]
  - Abdominal pain upper [Unknown]
  - Neck pain [Unknown]
  - Product use in unapproved indication [Unknown]

NARRATIVE: CASE EVENT DATE: 20180202
